FAERS Safety Report 5600238-1 (Version None)
Quarter: 2008Q1

REPORT INFORMATION
  Report Type: 
  Country: None (occurrence: None)
  Receive Date: 20080117
  Receipt Date: 20080117
  Transmission Date: 20080703
  Serious: Yes (Life-Threatening, Other)
  Sender: FDA-Public Use
  Company Number: None

PATIENT
  Age: 36 Year
  Sex: Female
  Weight: 43.0917 kg

DRUGS (1)
  1. PROCHLORPERAZINE [Suspect]
     Indication: NAUSEA
     Dosage: 1 TABLET EVERY 6 HOURS PO
     Route: 048
     Dates: start: 20080114, end: 20080115

REACTIONS (13)
  - AGITATION [None]
  - ASTHENIA [None]
  - COLD SWEAT [None]
  - FEAR [None]
  - INSOMNIA [None]
  - MALAISE [None]
  - PAIN [None]
  - PRESYNCOPE [None]
  - RESTLESSNESS [None]
  - SPEECH DISORDER [None]
  - TREMOR [None]
  - VISION BLURRED [None]
  - VISUAL DISTURBANCE [None]
